FAERS Safety Report 13761332 (Version 2)
Quarter: 2017Q3

REPORT INFORMATION
  Report Type: Spontaneous
  Country: US (occurrence: US)
  Receive Date: 20170717
  Receipt Date: 20170823
  Transmission Date: 20171127
  Serious: No
  Sender: FDA-Public Use
  Company Number: US-PFIZER INC-2017305196

PATIENT
  Age: 84 Year
  Sex: Male

DRUGS (3)
  1. GREEN TEA EXTRACT [Concomitant]
     Dosage: UNK
     Dates: start: 201706
  2. TURMERIC /01079602/ [Concomitant]
     Active Substance: HERBALS\TURMERIC
     Dosage: UNK
     Dates: start: 201706
  3. DOXYCYCLINE HYCLATE. [Suspect]
     Active Substance: DOXYCYCLINE HYCLATE
     Indication: AMYLOIDOSIS
     Dosage: 100 MG, 2X/DAY
     Dates: start: 201707

REACTIONS (1)
  - Drug ineffective for unapproved indication [Unknown]

NARRATIVE: CASE EVENT DATE: 201707
